FAERS Safety Report 4370334-8 (Version None)
Quarter: 2004Q2

REPORT INFORMATION
  Report Type: 
  Country: None (occurrence: None)
  Receive Date: 20040603
  Receipt Date: 20040317
  Transmission Date: 20050107
  Serious: No
  Sender: FDA-Public Use
  Company Number: US-BRISTOL-MYERS SQUIBB COMPANY-12535597

PATIENT
  Age: 62 Year
  Sex: Female
  Weight: 68 kg

DRUGS (6)
  1. ABILIFY [Suspect]
     Indication: SCHIZOPHRENIA
     Dosage: DOSE WAS INCREASED TO 30 MG (DATE UNKNOWN)
     Route: 048
  2. LEXAPRO [Concomitant]
  3. CIPRO [Concomitant]
  4. XANAX [Concomitant]
  5. METHOTREXATE [Concomitant]
  6. IBUPROFEN [Concomitant]

REACTIONS (2)
  - OTITIS MEDIA [None]
  - TACHYCARDIA [None]
